FAERS Safety Report 4492674-4 (Version None)
Quarter: 2004Q4

REPORT INFORMATION
  Report Type: 
  Country: None (occurrence: None)
  Receive Date: 20041029
  Receipt Date: 20041020
  Transmission Date: 20050328
  Serious: Yes (Hospitalization, Other)
  Sender: FDA-Public Use
  Company Number: 2004240424CA

PATIENT
  Age: 36 Year
  Sex: Female
  Weight: 180 kg

DRUGS (2)
  1. DEPO-PROVERA [Suspect]
     Indication: CONTRACEPTION
     Dosage: 150 MG/3 MONTHS, FIRST INJECTION, INTRAMUSCULAR
     Route: 030
     Dates: start: 20020501, end: 20020501
  2. DEPO-PROVERA [Suspect]
     Indication: CONTRACEPTION
     Dosage: 150 MG/3 MONTHS, FIRST INJECTION, INTRAMUSCULAR
     Route: 030
     Dates: start: 20040809, end: 20040809

REACTIONS (5)
  - ABASIA [None]
  - BACK PAIN [None]
  - COUGH [None]
  - KIDNEY INFECTION [None]
  - NASOPHARYNGITIS [None]
